FAERS Safety Report 7711281-0 (Version None)
Quarter: 2011Q3

REPORT INFORMATION
  Report Type: 
  Country: None (occurrence: None)
  Receive Date: 20110826
  Receipt Date: 20101215
  Transmission Date: 20111222
  Serious: No
  Sender: FDA-Public Use
  Company Number: US-BAYER-2011-000575

PATIENT
  Sex: Female

DRUGS (2)
  1. ZOLOFT [Concomitant]
     Indication: MOOD ALTERED
     Dosage: UNK
     Dates: end: 20100801
  2. MIRENA [Suspect]
     Indication: CONTRACEPTION
     Dosage: 20 MCG/24HR, QD
     Route: 015
     Dates: start: 20091125

REACTIONS (7)
  - DIZZINESS [None]
  - DIARRHOEA [None]
  - ABDOMINAL DISTENSION [None]
  - MOOD ALTERED [None]
  - MENORRHAGIA [None]
  - DYSMENORRHOEA [None]
  - HYPOMENORRHOEA [None]
